FAERS Safety Report 8972341 (Version 7)
Quarter: 2016Q3

REPORT INFORMATION
  Report Type: Report from Study
  Country: US (occurrence: US)
  Receive Date: 20121218
  Receipt Date: 20160921
  Transmission Date: 20161109
  Serious: Yes (Hospitalization)
  Sender: FDA-Public Use
  Company Number: US-JNJFOC-20121206090

PATIENT
  Age: 65 Year
  Sex: Female
  Weight: 77.11 kg

DRUGS (2)
  1. REMICADE [Suspect]
     Active Substance: INFLIXIMAB
     Indication: PSORIASIS
     Route: 042
     Dates: start: 200711
  2. METHOTREXATE. [Suspect]
     Active Substance: METHOTREXATE
     Indication: COLITIS ULCERATIVE
     Route: 065

REACTIONS (2)
  - Pleural effusion [Recovered/Resolved with Sequelae]
  - Haemorrhagic anaemia [Recovered/Resolved]

NARRATIVE: CASE EVENT DATE: 20121109
